FAERS Safety Report 5320107-4 (Version None)
Quarter: 2007Q2

REPORT INFORMATION
  Report Type: 
  Country: None (occurrence: None)
  Receive Date: 20070509
  Receipt Date: 20070507
  Transmission Date: 20071010
  Serious: Yes (Other)
  Sender: FDA-Public Use
  Company Number: GB-BRISTOL-MYERS SQUIBB COMPANY-13771647

PATIENT
  Age: 32 Year
  Sex: Female

DRUGS (1)
  1. KENALOG [Suspect]
     Indication: TENOSYNOVITIS STENOSANS
     Dosage: INJECTION

REACTIONS (1)
  - PERIPHERAL ISCHAEMIA [None]
